FAERS Safety Report 12955598 (Version 2)
Quarter: 2017Q1

REPORT INFORMATION
  Report Type: Report from Study
  Country: US (occurrence: US)
  Receive Date: 20161118
  Receipt Date: 20170110
  Transmission Date: 20170428
  Serious: Yes (Hospitalization)
  Sender: FDA-Public Use
  Company Number: US-GILEAD-2016-0242722

PATIENT
  Age: 66 Year
  Sex: Female

DRUGS (17)
  1. AMBRISENTAN [Suspect]
     Active Substance: AMBRISENTAN
     Dosage: 5 MG, QD
     Route: 065
     Dates: start: 20151021, end: 20161109
  2. MONTELUKAST [Concomitant]
     Active Substance: MONTELUKAST SODIUM
  3. BISOPROLOL [Concomitant]
     Active Substance: BISOPROLOL
  4. LORAZEPAM. [Concomitant]
     Active Substance: LORAZEPAM
  5. GABAPENTIN. [Concomitant]
     Active Substance: GABAPENTIN
  6. HYDROXYCHLOROQUINE [Concomitant]
     Active Substance: HYDROXYCHLOROQUINE
  7. LOPERAMIDE [Concomitant]
     Active Substance: LOPERAMIDE
  8. FUROSEMIDE. [Concomitant]
     Active Substance: FUROSEMIDE
  9. ADVAIR HFA [Concomitant]
     Active Substance: FLUTICASONE PROPIONATE\SALMETEROL XINAFOATE
  10. RELPAX [Concomitant]
     Active Substance: ELETRIPTAN HYDROBROMIDE
  11. AMBRISENTAN [Suspect]
     Active Substance: AMBRISENTAN
     Indication: PULMONARY HYPERTENSION
     Dosage: 5 MG, UNK
     Route: 065
     Dates: start: 20150409
  12. TYLENOL [Concomitant]
     Active Substance: ACETAMINOPHEN
  13. DEXILANT [Concomitant]
     Active Substance: DEXLANSOPRAZOLE
  14. BRINTELLIX [Concomitant]
     Active Substance: VORTIOXETINE HYDROBROMIDE
  15. ALBUTEROL                          /00139501/ [Concomitant]
     Active Substance: ALBUTEROL
  16. LEVOTHYROXINE. [Concomitant]
     Active Substance: LEVOTHYROXINE
  17. ADEMPAS [Concomitant]
     Active Substance: RIOCIGUAT
     Dates: start: 20151020, end: 20161109

REACTIONS (2)
  - Cardiac disorder [Unknown]
  - Neoplasm [Unknown]
